FAERS Safety Report 11638968 (Version 1)
Quarter: 2015Q4

REPORT INFORMATION
  Report Type: Spontaneous
  Country: SI (occurrence: SI)
  Receive Date: 20151018
  Receipt Date: 20151018
  Transmission Date: 20160304
  Serious: Yes (Other)
  Sender: FDA-Public Use
  Company Number: SI-SA-2015SA159406

PATIENT
  Age: 53 Year
  Sex: Male
  Weight: 60 kg

DRUGS (4)
  1. RAMIPRIL. [Concomitant]
     Active Substance: RAMIPRIL
     Dates: start: 20150128
  2. FABRAZYME [Suspect]
     Active Substance: AGALSIDASE BETA
     Indication: FABRY^S DISEASE
     Route: 042
     Dates: start: 20091005
  3. RIVAROXABAN [Concomitant]
     Active Substance: RIVAROXABAN
     Dates: start: 201412
  4. SOTALOL. [Concomitant]
     Active Substance: SOTALOL
     Dates: start: 201503

REACTIONS (2)
  - Atrial fibrillation [Recovered/Resolved]
  - Sinus rhythm [Recovered/Resolved]

NARRATIVE: CASE EVENT DATE: 20150926
